FAERS Safety Report 25680738 (Version 1)
Quarter: 2025Q3

REPORT INFORMATION
  Report Type: Spontaneous
  Country: EU (occurrence: EU)
  Receive Date: 20250814
  Receipt Date: 20250814
  Transmission Date: 20251020
  Serious: Yes (Other)
  Sender: MYLAN
  Company Number: EU-MYLANLABS-2025M1068473

PATIENT
  Age: 64 Year
  Sex: Male

DRUGS (12)
  1. CALCITONIN SALMON [Suspect]
     Active Substance: CALCITONIN SALMON
     Indication: Hypercalcaemia
  2. CALCITONIN SALMON [Suspect]
     Active Substance: CALCITONIN SALMON
     Route: 065
  3. CALCITONIN SALMON [Suspect]
     Active Substance: CALCITONIN SALMON
     Route: 065
  4. CALCITONIN SALMON [Suspect]
     Active Substance: CALCITONIN SALMON
  5. FUROSEMIDE [Suspect]
     Active Substance: FUROSEMIDE
     Indication: Hypercalcaemia
  6. FUROSEMIDE [Suspect]
     Active Substance: FUROSEMIDE
     Route: 065
  7. FUROSEMIDE [Suspect]
     Active Substance: FUROSEMIDE
     Route: 065
  8. FUROSEMIDE [Suspect]
     Active Substance: FUROSEMIDE
  9. CALCIFEDIOL [Concomitant]
     Active Substance: CALCIFEDIOL
     Indication: Vitamin D deficiency
     Dosage: 3 MILLIGRAM, QW, THERAPY COMPLETED
  10. CALCIFEDIOL [Concomitant]
     Active Substance: CALCIFEDIOL
     Dosage: 3 MILLIGRAM, QW, THERAPY COMPLETED
     Route: 065
  11. CALCIFEDIOL [Concomitant]
     Active Substance: CALCIFEDIOL
     Dosage: 3 MILLIGRAM, QW, THERAPY COMPLETED
     Route: 065
  12. CALCIFEDIOL [Concomitant]
     Active Substance: CALCIFEDIOL
     Dosage: 3 MILLIGRAM, QW, THERAPY COMPLETED

REACTIONS (1)
  - Drug ineffective [Unknown]
